FAERS Safety Report 17437227 (Version 2)
Quarter: 2020Q3

REPORT INFORMATION
  Report Type: Spontaneous
  Country: TH (occurrence: TH)
  Receive Date: 20200219
  Receipt Date: 20200318
  Transmission Date: 20201105
  Serious: Yes (Other)
  Sender: FDA-Public Use
  Company Number: NVSC2020TH046085

PATIENT
  Sex: Female

DRUGS (4)
  1. ARTEMETHER,LUMEFANTRINE [Suspect]
     Active Substance: ARTEMETHER\LUMEFANTRINE
     Indication: FOETAL EXPOSURE DURING PREGNANCY
     Dosage: UNK (MATERNAL DOSE)
     Route: 064
  2. FOLIC ACID. [Suspect]
     Active Substance: FOLIC ACID
     Indication: FOETAL EXPOSURE DURING PREGNANCY
     Dosage: 5 MG, QD
     Route: 064
  3. FERROUS SULFATE. [Suspect]
     Active Substance: FERROUS SULFATE
     Indication: FOETAL EXPOSURE DURING PREGNANCY
     Dosage: 400 MG, BID
     Route: 064
  4. CHLOROQUINE. [Suspect]
     Active Substance: CHLOROQUINE
     Indication: FOETAL EXPOSURE DURING PREGNANCY
     Dosage: UNK (MATERNAL DOSE)
     Route: 064

REACTIONS (2)
  - Low birth weight baby [Unknown]
  - Foetal exposure during pregnancy [Unknown]
